FAERS Safety Report 4701462-2 (Version None)
Quarter: 2005Q2

REPORT INFORMATION
  Report Type: 
  Country: None (occurrence: None)
  Receive Date: 20050627
  Receipt Date: 20050614
  Transmission Date: 20051028
  Serious: Yes (Life-Threatening)
  Sender: FDA-Public Use
  Company Number: HQWYE456114JUN05

PATIENT
  Age: 70 Year
  Sex: Female

DRUGS (15)
  1. PROPRANOLOL HYDROCHLORIDE [Suspect]
     Dosage: 40 MG 3X PER 1 DAY ORAL; 20 MG 3X PER 1 DAY ORAL
     Route: 048
     Dates: end: 20050501
  2. CORDARONE [Suspect]
     Dates: start: 20050501
  3. LANTUS [Suspect]
     Dosage: 1 DF ONCE SC
     Route: 058
     Dates: start: 20050507, end: 20050507
  4. LASIX [Suspect]
     Dosage: 500 MG 1X PER 1 DAY ORAL; 120 MG 1X PER 1 DAY ORAL
     Route: 048
     Dates: end: 20050501
  5. LASIX [Suspect]
     Dosage: 500 MG 1X PER 1 DAY ORAL; 120 MG 1X PER 1 DAY ORAL
     Route: 048
     Dates: start: 20050501
  6. NEO-MERCAZOLE TAB [Suspect]
     Indication: HYPERTHYROIDISM
     Dosage: ORAL; 1 DF ONCE ORAL
     Route: 048
     Dates: start: 20050507, end: 20050507
  7. OMEPRAZOLE [Concomitant]
  8. CALCIPARINE [Concomitant]
  9. ALLOPURINOL [Concomitant]
  10. TAHOR (ATORVASTATIN) [Concomitant]
  11. NEORECORMON (EPOETIN BETA) [Concomitant]
  12. DUPHALAC [Concomitant]
  13. INSULIN [Concomitant]
  14. GLUCOSE (GLUCOSE) [Concomitant]
  15. OSMOTAN (GLUCOSE/POTASSIUM CHLORIDE/SODIUM CHLORIDE) [Concomitant]

REACTIONS (4)
  - BLOOD CALCIUM INCREASED [None]
  - BLOOD SODIUM DECREASED [None]
  - HYPERTHYROIDISM [None]
  - SHOCK [None]
